FAERS Safety Report 7115262-X (Version None)
Quarter: 2010Q4

REPORT INFORMATION
  Report Type: 
  Country: None (occurrence: None)
  Receive Date: 20101122
  Receipt Date: 20101112
  Transmission Date: 20110411
  Serious: Yes (Hospitalization, Other)
  Sender: FDA-Public Use
  Company Number: US-US-EMD SERONO, INC.-7016741

PATIENT
  Sex: Male

DRUGS (3)
  1. REBIF [Suspect]
     Indication: MULTIPLE SCLEROSIS
     Route: 058
     Dates: start: 20090108
  2. INSULIN [Concomitant]
     Indication: DIABETES MELLITUS
  3. UNSPECIFIED MEDICATION [Concomitant]

REACTIONS (5)
  - BRAIN NEOPLASM [None]
  - CENTRAL NERVOUS SYSTEM LESION [None]
  - HEADACHE [None]
  - MALAISE [None]
  - MULTIPLE SCLEROSIS RELAPSE [None]
